FAERS Safety Report 8618536-6 (Version None)
Quarter: 2012Q3

REPORT INFORMATION
  Report Type: 
  Country: None (occurrence: None)
  Receive Date: 20120824
  Receipt Date: 20120821
  Transmission Date: 20120928
  Serious: No
  Sender: FDA-Public Use
  Company Number: US-PFIZER INC-2012206030

PATIENT
  Age: 72 Year
  Sex: Female
  Weight: 90.249 kg

DRUGS (9)
  1. KAOPECTATE [Suspect]
     Indication: DIARRHOEA
     Dosage: UNK
  2. DIAZEPAM [Concomitant]
     Indication: ANXIETY
     Dosage: 5 MG, 2X/DAY
  3. LOMOTIL [Suspect]
     Indication: DIARRHOEA
     Dosage: UNK
  4. PRAVASTATIN [Concomitant]
     Indication: BLOOD CHOLESTEROL ABNORMAL
     Dosage: 20 MG, DAILY
  5. LISINOPRIL [Concomitant]
     Indication: HYPERTENSION
     Dosage: 20 MG, DAILY
  6. HYDROXYCHLOROQUINE [Concomitant]
     Indication: SJOGREN'S SYNDROME
     Dosage: 200 MG, 2X/DAY
  7. GABAPENTIN [Suspect]
     Indication: NEUROPATHY PERIPHERAL
     Dosage: UNK
  8. BISMUTH SUBSALICYLATE [Suspect]
     Indication: DIARRHOEA
     Dosage: UNK
  9. DIAZEPAM [Concomitant]
     Indication: MUSCLE DISORDER

REACTIONS (2)
  - DRUG INEFFECTIVE [None]
  - WEIGHT INCREASED [None]
